FAERS Safety Report 10305876 (Version 1)
Quarter: 2014Q3

REPORT INFORMATION
  Report Type: Spontaneous
  Country: US (occurrence: US)
  Receive Date: 20140715
  Receipt Date: 20140715
  Transmission Date: 20150326
  Serious: No
  Sender: FDA-Public Use
  Company Number: US-MYLANLABS-2014S1011626

PATIENT
  Sex: Male

DRUGS (1)
  1. SELEGILINE HYDROCHLORIDE. [Suspect]
     Active Substance: SELEGILINE HYDROCHLORIDE
     Dosage: UNK

REACTIONS (1)
  - Drug screen false positive [Not Recovered/Not Resolved]

NARRATIVE: CASE EVENT DATE: 20140512
